FAERS Safety Report 7971439-2 (Version None)
Quarter: 2011Q4

REPORT INFORMATION
  Report Type: 
  Country: None (occurrence: None)
  Receive Date: 20111212
  Receipt Date: 20111206
  Transmission Date: 20120403
  Serious: No
  Sender: FDA-Public Use
  Company Number: US-PFIZER INC-2011298737

PATIENT

DRUGS (1)
  1. DEPO-PROVERA [Suspect]
     Dosage: UNK

REACTIONS (7)
  - MENORRHAGIA [None]
  - FATIGUE [None]
  - BACK PAIN [None]
  - INCREASED APPETITE [None]
  - ACNE [None]
  - MUSCLE SPASMS [None]
  - BREAST PAIN [None]
